FAERS Safety Report 13640706 (Version 1)
Quarter: 2017Q2

REPORT INFORMATION
  Report Type: Spontaneous
  Country: US (occurrence: US)
  Receive Date: 20170609
  Receipt Date: 20170609
  Transmission Date: 20170830
  Serious: Yes (Life-Threatening, Hospitalization)
  Sender: FDA-Public Use
  Company Number: None

PATIENT
  Age: 83 Year
  Sex: Male

DRUGS (1)
  1. APIXABIN [Suspect]
     Active Substance: APIXABAN
     Dates: start: 20170608, end: 20170608

REACTIONS (2)
  - Pericardial effusion [None]
  - Cardiac tamponade [None]

NARRATIVE: CASE EVENT DATE: 20170608
